FAERS Safety Report 9899894 (Version 1)
Quarter: 2014Q1

REPORT INFORMATION
  Report Type: Spontaneous
  Country: US (occurrence: US)
  Receive Date: 20140214
  Receipt Date: 20140214
  Transmission Date: 20141002
  Serious: Yes (Death, Hospitalization, Other)
  Sender: FDA-Public Use
  Company Number: US-ELI_LILLY_AND_COMPANY-US201402003266

PATIENT
  Age: 75 Year
  Sex: Male

DRUGS (7)
  1. HUMALOG 25% LISPRO, 75% NPL [Suspect]
     Indication: TYPE 2 DIABETES MELLITUS
     Dosage: 25 U, TID
     Route: 065
     Dates: start: 2008
  2. LISINOPRIL [Concomitant]
  3. FUROSEMIDE [Concomitant]
     Dosage: 40 MG, UNK
  4. PREDNISONE [Concomitant]
  5. ISOSORBID MONONITRATE [Concomitant]
  6. HYDRALAZINE [Concomitant]
     Dosage: 50 MG, UNK
  7. CARVEDILOL [Concomitant]
     Dosage: 25 MG, UNK

REACTIONS (13)
  - Death [Fatal]
  - Unresponsive to stimuli [Unknown]
  - Cardiac failure chronic [Not Recovered/Not Resolved]
  - Chronic obstructive pulmonary disease [Not Recovered/Not Resolved]
  - Traumatic lung injury [Unknown]
  - Pulmonary haemorrhage [Unknown]
  - Dyspnoea [Not Recovered/Not Resolved]
  - Groin pain [Not Recovered/Not Resolved]
  - Gait disturbance [Not Recovered/Not Resolved]
  - Fatigue [Not Recovered/Not Resolved]
  - Pain [Not Recovered/Not Resolved]
  - Cough [Not Recovered/Not Resolved]
  - Incorrect product storage [Not Recovered/Not Resolved]
